FAERS Safety Report 9474067 (Version 2)
Quarter: 2013Q3

REPORT INFORMATION
  Report Type: Report from Study
  Country: CA (occurrence: CA)
  Receive Date: 20130823
  Receipt Date: 20130823
  Transmission Date: 20140515
  Serious: Yes (Hospitalization)
  Sender: FDA-Public Use
  Company Number: PHHO2009CA02334

PATIENT
  Age: 88 Year
  Sex: Female
  Weight: 64 kg

DRUGS (6)
  1. ALISKIREN [Suspect]
     Indication: CARDIOVASCULAR DISORDER
     Dosage: UNK
     Route: 048
     Dates: start: 20080215, end: 20090118
  2. ALISKIREN [Suspect]
     Dosage: NO TREATMENT
     Dates: start: 20090119, end: 20090204
  3. ALISKIREN [Suspect]
     Route: 048
     Dates: start: 20090205, end: 20090209
  4. NOVOHYDRAZIDE [Concomitant]
  5. MONOPRIL [Concomitant]
  6. BISOPROLOL [Concomitant]

REACTIONS (6)
  - Acute coronary syndrome [Recovered/Resolved]
  - Angina pectoris [Recovered/Resolved]
  - Dyspnoea [Recovered/Resolved]
  - Dyspnoea at rest [Recovered/Resolved]
  - Pain [Unknown]
  - Post procedural complication [Unknown]
